FAERS Safety Report 6927952-X (Version None)
Quarter: 2010Q3

REPORT INFORMATION
  Report Type: 
  Country: None (occurrence: None)
  Receive Date: 20100817
  Receipt Date: 20100809
  Transmission Date: 20110219
  Serious: Yes (Death, Hospitalization, Other)
  Sender: FDA-Public Use
  Company Number: US-ELI_LILLY_AND_COMPANY-US200906004717

PATIENT
  Sex: Male
  Weight: 90.703 kg

DRUGS (15)
  1. BYETTA [Suspect]
     Dosage: 10 UG, UNKNOWN
     Dates: start: 20060821, end: 20071225
  2. TOPROL-XL [Concomitant]
     Dosage: 100 MG, DAILY (1/D)
     Route: 048
  3. LISINOPRIL [Concomitant]
     Dosage: 30 MG, DAILY (1/D)
     Route: 048
  4. ALLOPURINOL [Concomitant]
     Dosage: 300 MG, DAILY (1/D)
     Route: 048
  5. INDOMETHACIN [Concomitant]
     Indication: GOUT
     Dosage: 25 MG, AS NEEDED
  6. AMARYL [Concomitant]
     Dosage: 40 MG, DAILY (1/D)
     Route: 048
  7. METFORMIN [Concomitant]
     Dosage: 1000 MG, 2/D
  8. FLOMAX [Concomitant]
     Dosage: 0.4 MG, DAILY (1/D)
     Route: 048
  9. AMICAR [Concomitant]
     Dosage: 1 G, 2/D
     Route: 048
  10. ASPIRIN [Concomitant]
     Dosage: UNK, UNKNOWN
  11. PROPOXYPHENE HCL AND ACETAMINOPHEN [Concomitant]
     Dosage: UNK, UNKNOWN
  12. FOLIAMIN [Concomitant]
     Dosage: UNK, UNKNOWN
  13. CRESTOR [Concomitant]
     Dosage: 10 MG, UNKNOWN
  14. LOVAZA [Concomitant]
  15. TRICOR [Concomitant]
     Indication: BLOOD TRIGLYCERIDES

REACTIONS (4)
  - GLIOBLASTOMA MULTIFORME [None]
  - PANCREATITIS ACUTE [None]
  - RENAL FAILURE ACUTE [None]
  - RENAL TUBULAR NECROSIS [None]
